FAERS Safety Report 7310493-8 (Version None)
Quarter: 2011Q1

REPORT INFORMATION
  Report Type: 
  Country: None (occurrence: None)
  Receive Date: 20110224
  Receipt Date: 20101020
  Transmission Date: 20110831
  Serious: No
  Sender: FDA-Public Use
  Company Number: US-BRISTOL-MYERS SQUIBB COMPANY-15343635

PATIENT
  Age: 50 Year
  Sex: Female
  Weight: 51 kg

DRUGS (2)
  1. GLUCOPHAGE [Suspect]
     Dates: start: 20101001
  2. LIPITOR [Concomitant]

REACTIONS (1)
  - MIGRAINE [None]
